FAERS Safety Report 24053123 (Version 1)
Quarter: 2024Q3

REPORT INFORMATION
  Report Type: Spontaneous
  Country: US (occurrence: US)
  Receive Date: 20240705
  Receipt Date: 20240705
  Transmission Date: 20241016
  Serious: Yes (Hospitalization, Disabling, Other)
  Sender: EMD SERONO INC
  Company Number: US-Merck Healthcare KGaA-2024035009

PATIENT
  Age: 52 Year
  Sex: Female

DRUGS (1)
  1. MAVENCLAD [Suspect]
     Active Substance: CLADRIBINE
     Indication: Multiple sclerosis
     Route: 048

REACTIONS (6)
  - Pneumonia [Unknown]
  - Deafness bilateral [Unknown]
  - Heart valve incompetence [Unknown]
  - Aortic aneurysm [Unknown]
  - Weight decreased [Unknown]
  - Tachycardia [Unknown]
